FAERS Safety Report 16698502 (Version 1)
Quarter: 2019Q3

REPORT INFORMATION
  Report Type: Report from Study
  Country: MY (occurrence: MY)
  Receive Date: 20190813
  Receipt Date: 20190813
  Transmission Date: 20191004
  Serious: Yes (Hospitalization)
  Sender: FDA-Public Use
  Company Number: MY-JNJFOC-20190619527

PATIENT
  Age: 58 Year
  Sex: Male

DRUGS (1)
  1. ESKETAMINE [Suspect]
     Active Substance: ESKETAMINE
     Indication: DEPRESSION
     Dosage: MOST RECENT DOSE ADMINISTERED ON 03-JUN-2019 AT 10:55 (MEDICAL KIT NUMBERS: 338943,338944,338945)
     Dates: start: 20170726

REACTIONS (1)
  - Epididymal cyst [Not Recovered/Not Resolved]

NARRATIVE: CASE EVENT DATE: 20190207
